FAERS Safety Report 8835696 (Version 1)
Quarter: 2012Q4

REPORT INFORMATION
  Report Type: 
  Country: US (occurrence: US)
  Receive Date: 20121011
  Receipt Date: 20121011
  Transmission Date: 20130627
  Serious: Yes (Other)
  Sender: FDA-Public Use
  Company Number: US-ARROW-2012-17059

PATIENT
  Sex: Male
  Weight: 45 kg

DRUGS (3)
  1. LISINOPRIL (WATSON LABORATORIES) [Suspect]
     Indication: HYPERTENSION
     Dosage: 20 mg, daily
     Route: 048
     Dates: end: 201209
  2. PROCARDIA                          /00340701/ [Concomitant]
     Indication: HYPERTENSION
     Dosage: UNK
     Route: 048
  3. IRON [Concomitant]
     Indication: ANAEMIA
     Dosage: UNK
     Route: 048

REACTIONS (1)
  - Hypertensive crisis [Recovered/Resolved]
